FAERS Safety Report 23259929 (Version 1)
Quarter: 2023Q4

REPORT INFORMATION
  Report Type: Spontaneous
  Country: FR (occurrence: FR)
  Receive Date: 20231204
  Receipt Date: 20231204
  Transmission Date: 20240109
  Serious: Yes (Hospitalization)
  Sender: FDA-Public Use
  Company Number: None

PATIENT
  Age: 69 Year
  Sex: Male
  Weight: 73 kg

DRUGS (8)
  1. LEVETIRACETAM [Suspect]
     Active Substance: LEVETIRACETAM
     Indication: Epilepsy
     Dosage: 3 G, 1X/DAY
     Route: 048
     Dates: start: 20101123
  2. VALSARTAN [Suspect]
     Active Substance: VALSARTAN
     Indication: Epilepsy
     Dosage: 80 MG, 1X/DAY
     Route: 048
     Dates: start: 20090612
  3. SILODOSIN [Concomitant]
     Active Substance: SILODOSIN
  4. PANTOPRAZOLE [Concomitant]
     Active Substance: PANTOPRAZOLE
  5. SPIRONOLACTONE [Concomitant]
     Active Substance: SPIRONOLACTONE
  6. ACAMPROSATE CALCIUM [Concomitant]
     Active Substance: ACAMPROSATE CALCIUM
  7. ZOPICLONE [Concomitant]
     Active Substance: ZOPICLONE
  8. FYCOMPA [Concomitant]
     Active Substance: PERAMPANEL

REACTIONS (1)
  - Hypoglycaemia [Recovered/Resolved]

NARRATIVE: CASE EVENT DATE: 20231023
